FAERS Safety Report 10054888 (Version 1)
Quarter: 2014Q2

REPORT INFORMATION
  Report Type: Report from Study
  Country: AR (occurrence: AR)
  Receive Date: 20140402
  Receipt Date: 20140402
  Transmission Date: 20141212
  Serious: Yes (Death)
  Sender: FDA-Public Use
  Company Number: PHHY2014AR039841

PATIENT
  Sex: Female

DRUGS (1)
  1. STALEVO [Suspect]
     Dosage: 4 DF, DAILY
     Route: 048

REACTIONS (1)
  - Death [Fatal]
